FAERS Safety Report 8909548 (Version 1)
Quarter: 2012Q4

REPORT INFORMATION
  Report Type: 
  Country: US (occurrence: US)
  Receive Date: 20121115
  Receipt Date: 20121115
  Transmission Date: 20130627
  Serious: Yes (Hospitalization)
  Sender: FDA-Public Use
  Company Number: US-BAYER-2012-116540

PATIENT
  Age: 48 Year
  Sex: Female
  Weight: 93.89 kg

DRUGS (7)
  1. YAZ [Suspect]
  2. YASMIN [Suspect]
     Indication: MENOPAUSE
  3. ADVIL [Concomitant]
  4. HERBAL PREPARATION [Concomitant]
  5. TYLENOL [Concomitant]
  6. ALLEGRA-D [FEXOFENADINE HYDROCHLORIDE,PSEUDOEPHEDRINE HYDROCHLORID [Concomitant]
  7. TYLENOL PM [Concomitant]

REACTIONS (3)
  - Pulmonary embolism [None]
  - Deep vein thrombosis [None]
  - Off label use [None]
